FAERS Safety Report 15718250 (Version 1)
Quarter: 2018Q4

REPORT INFORMATION
  Report Type: Spontaneous
  Country: US (occurrence: US)
  Receive Date: 20181213
  Receipt Date: 20181213
  Transmission Date: 20190205
  Serious: Yes (Other)
  Sender: FDA-Public Use
  Company Number: None

PATIENT
  Sex: Female

DRUGS (4)
  1. GLATOPA [Suspect]
     Active Substance: GLATIRAMER ACETATE
     Indication: MULTIPLE SCLEROSIS
     Route: 058
  2. APAP/CODEINE TAB 300-30MG [Concomitant]
     Dates: start: 20180809
  3. APAP/CODEINE TAB 300-30MG [Concomitant]
     Dates: start: 20181113
  4. LISINOPRIL 10MG TAB [Concomitant]
     Active Substance: LISINOPRIL
     Dates: start: 20180809

REACTIONS (1)
  - Visual impairment [None]
